FAERS Safety Report 17708396 (Version 1)
Quarter: 2020Q2

REPORT INFORMATION
  Report Type: Spontaneous
  Country: FI (occurrence: FI)
  Receive Date: 20200426
  Receipt Date: 20200426
  Transmission Date: 20200714
  Serious: Yes (Other)
  Sender: FDA-Public Use
  Company Number: NVSC2020FI110497

PATIENT
  Sex: Female

DRUGS (1)
  1. TRAVATAN [Suspect]
     Active Substance: TRAVOPROST
     Indication: PRODUCT USED FOR UNKNOWN INDICATION
     Dosage: UNK
     Route: 065
     Dates: start: 2010

REACTIONS (6)
  - Cough [Not Recovered/Not Resolved]
  - Arthritis infective [Unknown]
  - Aphonia [Unknown]
  - Arthralgia [Unknown]
  - Eyelid infection [Unknown]
  - Taste disorder [Unknown]
